FAERS Safety Report 14501823 (Version 3)
Quarter: 2018Q1

REPORT INFORMATION
  Report Type: Report from Study
  Country: None (occurrence: GR)
  Receive Date: 20180207
  Receipt Date: 20180327
  Transmission Date: 20180509
  Serious: Yes (Hospitalization)
  Sender: FDA-Public Use
  Company Number: GR-ABBVIE-18K-066-2247311-00

PATIENT
  Age: 59 Year
  Sex: Male

DRUGS (2)
  1. DUODOPA [Suspect]
     Active Substance: CARBIDOPA\LEVODOPA
     Indication: PARKINSON^S DISEASE
     Dosage: CONTINUOUS RATE: 2.7ML/H??ON A 24-HOUR BASIS
     Route: 050
     Dates: start: 2012
  2. DUODOPA [Suspect]
     Active Substance: CARBIDOPA\LEVODOPA
     Dosage: CONTINUOUS RATE:3.0ML/HR ON A 24H BASIS
     Route: 050

REACTIONS (3)
  - Renal impairment [Not Recovered/Not Resolved]
  - Blood pressure abnormal [Unknown]
  - H1N1 influenza [Not Recovered/Not Resolved]

NARRATIVE: CASE EVENT DATE: 20180127
